FAERS Safety Report 8373977-X (Version None)
Quarter: 2012Q2

REPORT INFORMATION
  Report Type: 
  Country: None (occurrence: None)
  Receive Date: 20120521
  Receipt Date: 20120507
  Transmission Date: 20120825
  Serious: No
  Sender: FDA-Public Use
  Company Number: US-ASTRAZENECA-2012SE29254

PATIENT
  Age: 46 Year
  Sex: Female
  Weight: 70.8 kg

DRUGS (7)
  1. NEXIUM [Suspect]
     Indication: ABDOMINAL DISTENSION
     Route: 048
  2. NEXIUM [Suspect]
     Indication: ABDOMINAL DISCOMFORT
     Route: 048
  3. NEXIUM [Suspect]
     Indication: CONSTIPATION
     Route: 048
  4. NEXIUM [Suspect]
     Indication: FLATULENCE
     Route: 048
  5. NEXIUM [Suspect]
     Indication: NAUSEA
     Route: 048
  6. NEXIUM [Suspect]
     Indication: GASTRITIS
     Route: 048
  7. PREVACID [Concomitant]

REACTIONS (2)
  - GASTROOESOPHAGEAL REFLUX DISEASE [None]
  - OFF LABEL USE [None]
